FAERS Safety Report 9316724 (Version 1)
Quarter: 2013Q2

REPORT INFORMATION
  Report Type: Spontaneous
  Country: US (occurrence: None)
  Receive Date: 20130528
  Receipt Date: 20130528
  Transmission Date: 20140414
  Serious: Yes (Other)
  Sender: FDA-Public Use
  Company Number: None

PATIENT
  Age: 50 Year
  Sex: Male
  Weight: 85 kg

DRUGS (2)
  1. ALTREX [Suspect]
     Indication: ANXIETY
     Dosage: 2 TIMES MONTHY OTIC (ROUTE)
     Dates: start: 20090520, end: 20090719
  2. LORAZEPAM [Suspect]
     Indication: DEPRESSION
     Dosage: 3 TIMES MONTHLY OTIC
     Dates: start: 20090719, end: 20090723

REACTIONS (1)
  - Unevaluable event [None]
